FAERS Safety Report 18052844 (Version 4)
Quarter: 2024Q1

REPORT INFORMATION
  Report Type: Spontaneous
  Country: JP (occurrence: JP)
  Receive Date: 20200721
  Receipt Date: 20240229
  Transmission Date: 20240410
  Serious: Yes (Hospitalization, Other)
  Sender: FDA-Public Use
  Company Number: JP-BRISTOL-MYERS SQUIBB COMPANY-BMS-2020-056982

PATIENT
  Age: 9 Decade
  Sex: Male

DRUGS (1)
  1. SPRYCEL [Suspect]
     Active Substance: DASATINIB
     Indication: Chronic myeloid leukaemia
     Dosage: ??
     Route: 048

REACTIONS (5)
  - Pleural effusion [Recovering/Resolving]
  - Diarrhoea [Recovered/Resolved]
  - Cerebral artery embolism [Recovered/Resolved]
  - Pleurisy [Unknown]
  - Rash [Unknown]

NARRATIVE: CASE EVENT DATE: 20150101
